FAERS Safety Report 4456899-6 (Version None)
Quarter: 2004Q3

REPORT INFORMATION
  Report Type: 
  Country: None (occurrence: None)
  Receive Date: 20040923
  Receipt Date: 20031210
  Transmission Date: 20050211
  Serious: Yes (Hospitalization, Congenital Anomaly)
  Sender: FDA-Public Use
  Company Number: US-ROCHE-353904

PATIENT
  Sex: Female

DRUGS (2)
  1. ROACCUTANE [Suspect]
     Indication: DRUG USE FOR UNKNOWN INDICATION
     Dates: start: 20031015, end: 20031215
  2. ROACCUTANE [Suspect]
     Dosage: MONDAY AND FRIDAY
     Dates: start: 20031215

REACTIONS (6)
  - CARDIAC MURMUR [None]
  - CONGENITAL ANOMALY [None]
  - FLUID INTAKE REDUCED [None]
  - PREGNANCY [None]
  - TRANSMISSION OF DRUG VIA SEMEN [None]
  - UTERINE CONTRACTIONS DURING PREGNANCY [None]
